FAERS Safety Report 21761058 (Version 1)
Quarter: 2022Q4

REPORT INFORMATION
  Report Type: Spontaneous
  Country: US (occurrence: US)
  Receive Date: 20221221
  Receipt Date: 20221221
  Transmission Date: 20230113
  Serious: Yes (Other)
  Sender: FDA-Public Use
  Company Number: US-PFIZER INC-202201377435

PATIENT
  Age: 65 Year
  Sex: Female
  Weight: 64.41 kg

DRUGS (3)
  1. VYNDAMAX [Suspect]
     Active Substance: TAFAMIDIS
     Indication: Cardiac amyloidosis
     Dosage: 61 MG, DAILY
     Route: 048
     Dates: start: 2020
  2. ATORVASTATIN [Concomitant]
     Active Substance: ATORVASTATIN
     Indication: Blood cholesterol increased
     Dosage: 20 MG, 1X/DAY; TAKING IT FOR AT LEAST 10 YEARS
  3. VENLAFAXINE [Concomitant]
     Active Substance: VENLAFAXINE HYDROCHLORIDE
     Indication: Vertigo
     Dosage: 37.5 MG, 1X/DAY; TAKING IT FOR 3 YEARS
     Route: 048
     Dates: start: 2019

REACTIONS (2)
  - Deafness bilateral [Unknown]
  - Vestibular disorder [Unknown]

NARRATIVE: CASE EVENT DATE: 20200101
